FAERS Safety Report 5883828-0 (Version None)
Quarter: 2008Q3

REPORT INFORMATION
  Report Type: 
  Country: None (occurrence: None)
  Receive Date: 20080915
  Receipt Date: 20080910
  Transmission Date: 20090109
  Serious: Yes (Disabling)
  Sender: FDA-Public Use
  Company Number: A0746781A

PATIENT
  Age: 88 Year
  Sex: Male

DRUGS (5)
  1. AVODART [Suspect]
     Indication: BENIGN PROSTATIC HYPERPLASIA
     Dosage: 1CAP SINGLE DOSE
     Route: 048
     Dates: start: 20080908
  2. DIGITALIS TAB [Concomitant]
  3. PLAVIX [Concomitant]
  4. CLONIDINE [Concomitant]
  5. FLOMAX [Concomitant]

REACTIONS (1)
  - ILL-DEFINED DISORDER [None]
